FAERS Safety Report 10203483 (Version 2)
Quarter: 2014Q2

REPORT INFORMATION
  Report Type: Spontaneous
  Country: US (occurrence: None)
  Receive Date: 20140523
  Receipt Date: 20140617
  Transmission Date: 20141212
  Serious: Yes (Life-Threatening, Other)
  Sender: FDA-Public Use
  Company Number: 2014EXPUS00056

PATIENT
  Sex: Female

DRUGS (1)
  1. EXPAREL (BUPIVACAINE) LIPOSOME INJECTABLE SUSPENSION, MG/ML [Suspect]
     Indication: POSTOPERATIVE ANALGESIA
     Dosage: UNKNOWN, 1X, INFILTRATION
     Dates: start: 20140513, end: 20140513

REACTIONS (4)
  - Generalised tonic-clonic seizure [None]
  - Blood pressure decreased [None]
  - Cardiac disorder [None]
  - Arrhythmia [None]
